FAERS Safety Report 12692210 (Version 1)
Quarter: 2016Q3

REPORT INFORMATION
  Report Type: Report from Study
  Country: CA (occurrence: CA)
  Receive Date: 20160828
  Receipt Date: 20160828
  Transmission Date: 20161109
  Serious: Yes (Death)
  Sender: FDA-Public Use
  Company Number: PHHY2016CA116982

PATIENT
  Age: 76 Year
  Sex: Female
  Weight: 96 kg

DRUGS (2)
  1. AFINITOR [Suspect]
     Active Substance: EVEROLIMUS
     Indication: BREAST CANCER METASTATIC
     Dosage: 10 MG, QD
     Route: 048
     Dates: start: 20160708, end: 20160814
  2. CEFTRIAXONE. [Concomitant]
     Active Substance: CEFTRIAXONE
     Indication: UROSEPSIS
     Dosage: UNK
     Route: 042
     Dates: start: 20160814

REACTIONS (5)
  - Urosepsis [Fatal]
  - Lethargy [Fatal]
  - Thrombocytopenia [Fatal]
  - Pyrexia [Fatal]
  - Sinus tachycardia [Fatal]

NARRATIVE: CASE EVENT DATE: 20160814
